FAERS Safety Report 5731864-7 (Version None)
Quarter: 2008Q2

REPORT INFORMATION
  Report Type: 
  Country: None (occurrence: None)
  Receive Date: 20080508
  Receipt Date: 20080429
  Transmission Date: 20081010
  Serious: Yes (Hospitalization, Disabling, Other)
  Sender: FDA-Public Use
  Company Number: D0056733A

PATIENT
  Age: 70 Year
  Sex: Male
  Weight: 116 kg

DRUGS (11)
  1. AVANDIA [Suspect]
     Dosage: 4MG PER DAY
     Route: 048
     Dates: start: 20070501, end: 20080407
  2. MARCUMAR [Concomitant]
     Route: 048
     Dates: start: 20070101
  3. BISOPROLOL + HYDROCHLOROTHIAZIDE [Concomitant]
     Dosage: 35MG PER DAY
     Route: 048
  4. BISOPROLOL FUMARATE [Concomitant]
     Dosage: 5MG PER DAY
     Route: 048
  5. AMLODIPINE [Concomitant]
     Dosage: 5MG PER DAY
     Route: 048
  6. OLMESARTAN MEDOXOMIL [Concomitant]
     Dosage: 20MG PER DAY
     Route: 048
  7. EBRANTIL [Concomitant]
     Dosage: 30MG THREE TIMES PER DAY
     Route: 048
  8. FLUVASTATIN [Concomitant]
     Dosage: 80MG PER DAY
     Route: 048
  9. IBUPROFEN TABLETS [Concomitant]
     Dosage: 600MG THREE TIMES PER DAY
     Route: 048
  10. TOREM [Concomitant]
     Dosage: 10MG PER DAY
     Route: 048
  11. AVANDAMET [Concomitant]
     Dosage: 1004MG PER DAY
     Route: 048
     Dates: start: 20070201, end: 20070501

REACTIONS (14)
  - ASTHMA [None]
  - BRONCHIAL HYPERREACTIVITY [None]
  - COUGH [None]
  - DYSPNOEA EXERTIONAL [None]
  - FLUID RETENTION [None]
  - NOCTURIA [None]
  - OBESITY [None]
  - OEDEMA PERIPHERAL [None]
  - PRODUCTIVE COUGH [None]
  - PROTEINURIA [None]
  - SKIN TIGHTNESS [None]
  - SKIN ULCER [None]
  - SLEEP APNOEA SYNDROME [None]
  - WEIGHT INCREASED [None]
